FAERS Safety Report 4603657-5 (Version None)
Quarter: 2005Q1

REPORT INFORMATION
  Report Type: 
  Country: None (occurrence: None)
  Receive Date: 20050308
  Receipt Date: 20050224
  Transmission Date: 20050727
  Serious: Yes (Other)
  Sender: FDA-Public Use
  Company Number: 2005029780

PATIENT
  Age: 82 Year
  Sex: Female

DRUGS (4)
  1. BEXTRA [Suspect]
     Indication: TENDONITIS
     Dosage: 40 MG (40 MG, 1 IN 1 D), ORAL
     Route: 048
     Dates: start: 20041210, end: 20041215
  2. NIFEDIPINE [Concomitant]
  3. HYZAAR [Concomitant]
  4. ALBYL-ENTEROSOLUBILE [Concomitant]

REACTIONS (1)
  - STEVENS-JOHNSON SYNDROME [None]
